FAERS Safety Report 6139301-8 (Version None)
Quarter: 2009Q2

REPORT INFORMATION
  Report Type: 
  Country: None (occurrence: None)
  Receive Date: 20090401
  Receipt Date: 20090320
  Transmission Date: 20091009
  Serious: Yes (Other)
  Sender: FDA-Public Use
  Company Number: FR-RANBAXY-2009RR-22941

PATIENT
  Age: 17 Year
  Sex: Female

DRUGS (6)
  1. FLUOXETINE [Suspect]
     Dosage: 20 UNK, UNK
     Dates: end: 19930629
  2. CLOBAZAM [Suspect]
  3. DESMOPRESSIN ACETATE [Suspect]
  4. CHLORMADINONE ACETATE TAB [Suspect]
  5. WESTCORT TOPICAL OINTMENT [Suspect]
  6. PHENYTOIN [Suspect]

REACTIONS (2)
  - CONVULSION [None]
  - HYPONATRAEMIA [None]
